FAERS Safety Report 25368519 (Version 1)
Quarter: 2025Q2

REPORT INFORMATION
  Report Type: Spontaneous
  Country: US (occurrence: US)
  Receive Date: 20250528
  Receipt Date: 20250528
  Transmission Date: 20250716
  Serious: Yes (Other)
  Sender: MYLAN
  Company Number: US-MYLANLABS-2025M1044615

PATIENT
  Sex: Male
  Weight: 59.42 kg

DRUGS (1)
  1. ALPRAZOLAM [Suspect]
     Active Substance: ALPRAZOLAM
     Indication: Craniocerebral injury
     Dosage: 2 MILLIGRAM, QID (4 TIMES PER DAY)

REACTIONS (7)
  - Seizure [Recovered/Resolved]
  - Hallucination [Unknown]
  - Panic attack [Recovered/Resolved]
  - Vomiting [Unknown]
  - Anxiety [Recovered/Resolved]
  - Drug hypersensitivity [Unknown]
  - Off label use [Unknown]
